FAERS Safety Report 9346670 (Version 1)
Quarter: 2013Q2

REPORT INFORMATION
  Report Type: Spontaneous
  Country: BR (occurrence: BR)
  Receive Date: 20130613
  Receipt Date: 20130613
  Transmission Date: 20140414
  Serious: Yes (Other)
  Sender: FDA-Public Use
  Company Number: BR-JNJFOC-20130605247

PATIENT
  Sex: Male
  Weight: 70 kg

DRUGS (3)
  1. NICORETTE GUM 2MG ICE MINT [Suspect]
     Indication: NICOTINE DEPENDENCE
     Dosage: 4 GUMS A DAY
     Route: 048
     Dates: start: 2011
  2. NICORETTE GUM 4MG [Suspect]
     Indication: SMOKING CESSATION THERAPY
     Route: 048
  3. NIQUITIN GUM [Suspect]
     Indication: SMOKING CESSATION THERAPY
     Route: 048

REACTIONS (2)
  - Nicotine dependence [Not Recovered/Not Resolved]
  - Intentional drug misuse [None]
